FAERS Safety Report 18644522 (Version 1)
Quarter: 2020Q4

REPORT INFORMATION
  Report Type: Report from Study
  Country: US (occurrence: US)
  Receive Date: 20201221
  Receipt Date: 20201221
  Transmission Date: 20210114
  Serious: Yes (Other)
  Sender: FDA-Public Use
  Company Number: US-GLAXOSMITHKLINE-US2020GSK151732

PATIENT
  Age: 60 Year
  Sex: Female
  Weight: 57.8 kg

DRUGS (2)
  1. BELANTAMAB MAFODOTIN. [Suspect]
     Active Substance: BELANTAMAB MAFODOTIN
     Indication: PLASMA CELL MYELOMA
     Dosage: 2.5 MG/KG, QD
     Route: 042
     Dates: start: 20200211, end: 20200728
  2. ASPIRIN. [Concomitant]
     Active Substance: ASPIRIN
     Dosage: 81 MG
     Route: 048

REACTIONS (15)
  - Contusion [Recovering/Resolving]
  - Eye haemorrhage [Recovered/Resolved]
  - Pruritus [Recovering/Resolving]
  - Dizziness [Recovered/Resolved]
  - Constipation [Recovering/Resolving]
  - Alopecia [Recovering/Resolving]
  - Eye pain [Recovering/Resolving]
  - Thrombocytopenia [Recovering/Resolving]
  - Asthenopia [Recovering/Resolving]
  - Keratitis [Recovering/Resolving]
  - Nausea [Recovering/Resolving]
  - Bone pain [Recovering/Resolving]
  - Dry eye [Recovering/Resolving]
  - Eye haemorrhage [Recovered/Resolved]
  - Hypogammaglobulinaemia [Recovering/Resolving]

NARRATIVE: CASE EVENT DATE: 20200205
